FAERS Safety Report 7316209-3 (Version None)
Quarter: 2011Q1

REPORT INFORMATION
  Report Type: 
  Country: None (occurrence: None)
  Receive Date: 20110225
  Receipt Date: 20110215
  Transmission Date: 20110831
  Serious: Yes (Other)
  Sender: FDA-Public Use
  Company Number: US-ROCHE-735452

PATIENT
  Sex: Male
  Weight: 61.2 kg

DRUGS (2)
  1. TRIAMCINOLONE ACETONIDE [Concomitant]
  2. ACCUTANE [Suspect]
     Indication: ACNE
     Route: 065
     Dates: start: 19990301, end: 19990801

REACTIONS (8)
  - NAUSEA [None]
  - ABDOMINAL PAIN [None]
  - ARTHRITIS [None]
  - RECTAL HAEMORRHAGE [None]
  - INFLAMMATORY BOWEL DISEASE [None]
  - HAEMORRHOIDS [None]
  - COLITIS ULCERATIVE [None]
  - CROHN'S DISEASE [None]
